FAERS Safety Report 15638906 (Version 1)
Quarter: 2018Q4

REPORT INFORMATION
  Report Type: Spontaneous
  Country: CA (occurrence: CA)
  Receive Date: 20181120
  Receipt Date: 20181120
  Transmission Date: 20190205
  Serious: Yes (Hospitalization, Other)
  Sender: FDA-Public Use
  Company Number: CA-TEVA-2018-CA-978642

PATIENT
  Age: 55 Year
  Sex: Female

DRUGS (15)
  1. CONSTELLA [Concomitant]
     Active Substance: LINACLOTIDE
  2. ERGOCALCIFEROL. [Concomitant]
     Active Substance: ERGOCALCIFEROL
  3. GABAPENTIN. [Concomitant]
     Active Substance: GABAPENTIN
  4. LORAZEPAM. [Concomitant]
     Active Substance: LORAZEPAM
  5. MAGNESIUM CHLORIDE. [Concomitant]
     Active Substance: MAGNESIUM CHLORIDE
  6. CHLORDIAZEPOXIDE/CLIDINIUM BROMIDE [Concomitant]
     Active Substance: CHLORDIAZEPOXIDE\CLIDINIUM BROMIDE
  7. VITAMINS NOS [Concomitant]
     Active Substance: VITAMINS
  8. PROBIOTICS [Concomitant]
     Active Substance: PROBIOTICS NOS
  9. AMITRIPTYLINE [Concomitant]
     Active Substance: AMITRIPTYLINE
  10. CALCIUM [Concomitant]
     Active Substance: CALCIUM
  11. PROLIA [Suspect]
     Active Substance: DENOSUMAB
     Indication: OSTEOPENIA
     Route: 065
  12. IMMUNOGLOBULINS [Concomitant]
     Active Substance: IMMUNE GLOBULIN NOS
  13. ROSUVASTATIN CALCIUM. [Suspect]
     Active Substance: ROSUVASTATIN CALCIUM
     Indication: PRODUCT USED FOR UNKNOWN INDICATION
     Route: 048
  14. MACROGOL 3350 [Concomitant]
     Active Substance: POLYETHYLENE GLYCOL 3350
  15. COPAXONE [Concomitant]
     Active Substance: GLATIRAMER ACETATE

REACTIONS (5)
  - Off label use [Not Recovered/Not Resolved]
  - Fatigue [Not Recovered/Not Resolved]
  - Arthralgia [Not Recovered/Not Resolved]
  - Immunoglobulins decreased [Not Recovered/Not Resolved]
  - Osteoporosis [Not Recovered/Not Resolved]
